FAERS Safety Report 4344720-6 (Version None)
Quarter: 2004Q2

REPORT INFORMATION
  Report Type: 
  Country: None (occurrence: None)
  Receive Date: 20040420
  Receipt Date: 20040406
  Transmission Date: 20050107
  Serious: Yes (Hospitalization)
  Sender: FDA-Public Use
  Company Number: US-JNJFOC-20031203503

PATIENT
  Age: 66 Year
  Sex: Male

DRUGS (10)
  1. REMICADE [Suspect]
     Indication: RHEUMATOID ARTHRITIS
     Dosage: INTRAVENOUS
     Route: 042
     Dates: start: 20000315
  2. PREVACID [Concomitant]
  3. REGLAN [Concomitant]
  4. METHOTREXATE [Concomitant]
  5. LEUCOVORIN CALCIUM [Concomitant]
  6. LOTREL [Concomitant]
  7. FOSANAX (ALENDRONATE SODIUM) [Concomitant]
  8. ZOCOR [Concomitant]
  9. DARVOCET [Concomitant]
  10. MULTI-VITAMINS [Concomitant]

REACTIONS (1)
  - HAEMORRHAGE [None]
